FAERS Safety Report 14250711 (Version 3)
Quarter: 2018Q1

REPORT INFORMATION
  Report Type: Spontaneous
  Country: US (occurrence: US)
  Receive Date: 20171205
  Receipt Date: 20180323
  Transmission Date: 20180508
  Serious: Yes (Hospitalization)
  Sender: FDA-Public Use
  Company Number: US-PFIZER INC-2017516782

PATIENT
  Age: 83 Year
  Sex: Female
  Weight: 52.16 kg

DRUGS (8)
  1. PRESERVISION EYE VITAMIN [Concomitant]
     Indication: PROPHYLAXIS
     Dosage: COATED TABLET BY MOUTH TWICE A DAY SOME DAYS AND ONCE A DAY SOME OTHERS
     Route: 048
  2. ATROPINE SULFATE/DIPHENOXYLATE HYDROCHLORIDE [Suspect]
     Active Substance: ATROPINE SULFATE\DIPHENOXYLATE HYDROCHLORIDE
     Indication: DIARRHOEA
     Dosage: 1 DF, 2X/DAY [DIPHENOXYLATE HCL, 2.5MG]/[ATROPINE SULFATE, 0.025MG]
     Route: 048
     Dates: start: 20170404, end: 201704
  3. PAXIL [Concomitant]
     Active Substance: PAROXETINE HYDROCHLORIDE
     Indication: ANXIETY
  4. ZOCOR [Concomitant]
     Active Substance: SIMVASTATIN
     Indication: BLOOD CHOLESTEROL ABNORMAL
     Dosage: 20 MG, ALTERNATE DAY (20MG TABLET BY MOUTH EVERY OTHER DAY)
     Route: 048
  5. PAXIL [Concomitant]
     Active Substance: PAROXETINE HYDROCHLORIDE
     Indication: STRESS
  6. PAXIL [Concomitant]
     Active Substance: PAROXETINE HYDROCHLORIDE
     Indication: SYNCOPE
     Dosage: 10 MG, 2X/DAY (10MG TABLET BY MOUTH TWICE DAILY)
     Route: 048
  7. PRESERVISION EYE VITAMIN [Concomitant]
     Dosage: UNK
     Dates: start: 2017
  8. COENZYME Q10 [Concomitant]
     Active Substance: UBIDECARENONE
     Indication: SUPPLEMENTATION THERAPY
     Dosage: 2 DF, ALTERNATE DAY (2 TABLETS BY MOUTH EVERY OTHER DAY WITH ZOCOR)
     Route: 048

REACTIONS (5)
  - Nausea [Recovered/Resolved]
  - Dizziness [Recovered/Resolved]
  - Feeling abnormal [Recovered/Resolved]
  - Faecal volume increased [Recovered/Resolved]
  - Malaise [Recovered/Resolved]

NARRATIVE: CASE EVENT DATE: 201704
